FAERS Safety Report 9813003 (Version 2)
Quarter: 2014Q1

REPORT INFORMATION
  Report Type: Spontaneous
  Country: BR (occurrence: BR)
  Receive Date: 20140113
  Receipt Date: 20140113
  Transmission Date: 20141002
  Serious: Yes (Death)
  Sender: FDA-Public Use
  Company Number: BR-PFIZER INC-2013095785

PATIENT
  Age: 59 Year
  Sex: Male

DRUGS (2)
  1. SUTENT [Suspect]
     Indication: RENAL CELL CARCINOMA
     Dosage: 50 MG, (1 CAPSULE) 1X/DAY CYCLE 4 X 2
     Route: 048
     Dates: start: 20130314
  2. TYLEX [Concomitant]
     Dosage: UNK

REACTIONS (2)
  - Death [Fatal]
  - Dysgeusia [Not Recovered/Not Resolved]
